FAERS Safety Report 17984785 (Version 1)
Quarter: 2020Q3

REPORT INFORMATION
  Report Type: Spontaneous
  Country: US (occurrence: US)
  Receive Date: 20200706
  Receipt Date: 20200706
  Transmission Date: 20201103
  Serious: No
  Sender: FDA-Public Use
  Company Number: US-PRINSTON PHARMACEUTICAL INC.-2020PRN00192

PATIENT
  Age: 56 Year
  Sex: Female
  Weight: 76.19 kg

DRUGS (17)
  1. ALPHA LIPOIC ACID [Concomitant]
     Active Substance: .ALPHA.-LIPOIC ACID
  2. NEXIUM [Concomitant]
     Active Substance: ESOMEPRAZOLE MAGNESIUM
  3. PREGNENOLONE [Concomitant]
     Active Substance: PREGNENOLONE
  4. VITAMIN D3 [Concomitant]
     Active Substance: CHOLECALCIFEROL
  5. METOPROLOL. [Suspect]
     Active Substance: METOPROLOL
     Dosage: UNK
     Dates: start: 2019, end: 2020
  6. ESTRADIOL. [Concomitant]
     Active Substance: ESTRADIOL
  7. LEVOTHYROXINE. [Concomitant]
     Active Substance: LEVOTHYROXINE
  8. LISINOPRIL. [Suspect]
     Active Substance: LISINOPRIL
     Indication: HYPERTENSION
     Dosage: 20 MG, 2X/DAY
     Route: 048
     Dates: start: 20200601
  9. GLUTATHIONE [Concomitant]
     Active Substance: GLUTATHIONE
  10. PROGESTERONE. [Concomitant]
     Active Substance: PROGESTERONE
  11. DHEA [Concomitant]
     Active Substance: PRASTERONE
  12. ESTROGEN [Concomitant]
     Active Substance: ESTROGENS
  13. MITOQ PLUS CERCUMIN [Concomitant]
  14. NAC [Concomitant]
  15. TESTOSTERONE. [Concomitant]
     Active Substance: TESTOSTERONE
  16. L?GLUTAMINE [Concomitant]
     Dosage: ^SOMETIMES^
  17. MAGNESIUM (OTC) [Concomitant]

REACTIONS (6)
  - Abdominal distension [Not Recovered/Not Resolved]
  - Gastrointestinal disorder [Not Recovered/Not Resolved]
  - Nausea [Not Recovered/Not Resolved]
  - Heart rate decreased [Not Recovered/Not Resolved]
  - Faeces soft [Not Recovered/Not Resolved]
  - Diarrhoea [Not Recovered/Not Resolved]

NARRATIVE: CASE EVENT DATE: 202006
